FAERS Safety Report 8239542-X (Version None)
Quarter: 2012Q1

REPORT INFORMATION
  Report Type: 
  Country: None (occurrence: None)
  Receive Date: 20120328
  Receipt Date: 20120320
  Transmission Date: 20120608
  Serious: Yes (Hospitalization, Other)
  Sender: FDA-Public Use
  Company Number: US-AMGEN-USASP2012017902

PATIENT
  Sex: Female

DRUGS (3)
  1. ARANESP [Suspect]
  2. EPOGEN [Suspect]
  3. EPOGEN [Suspect]
     Indication: PRODUCT USED FOR UNKNOWN INDICATION

REACTIONS (4)
  - VISUAL IMPAIRMENT [None]
  - DYSPNOEA [None]
  - JOINT SWELLING [None]
  - SWELLING [None]
